FAERS Safety Report 23416149 (Version 1)
Quarter: 2024Q1

REPORT INFORMATION
  Report Type: Spontaneous
  Country: GB (occurrence: GB)
  Receive Date: 20240118
  Receipt Date: 20240118
  Transmission Date: 20240410
  Serious: Yes (Other)
  Sender: FDA-Public Use
  Company Number: None

PATIENT
  Sex: Female

DRUGS (1)
  1. FEXOFENADINE [Suspect]
     Active Substance: FEXOFENADINE HYDROCHLORIDE
     Indication: Urticaria
     Route: 065

REACTIONS (4)
  - Hypersensitivity [Recovering/Resolving]
  - Mouth swelling [Recovered/Resolved]
  - Urticaria [Recovering/Resolving]
  - Pharyngeal swelling [Recovered/Resolved]
